FAERS Safety Report 10739652 (Version 1)
Quarter: 2015Q1

REPORT INFORMATION
  Report Type: Spontaneous
  Country: US (occurrence: US)
  Receive Date: 20150127
  Receipt Date: 20150127
  Transmission Date: 20150721
  Serious: Yes (Death)
  Sender: FDA-Public Use
  Company Number: US-009507513-1501USA007609

PATIENT
  Age: 32 Year
  Sex: Female

DRUGS (4)
  1. ELAVIL [Suspect]
     Active Substance: AMITRIPTYLINE HYDROCHLORIDE
     Route: 048
  2. PROPRANOLOL HYDROCHLORIDE. [Suspect]
     Active Substance: PROPRANOLOL HYDROCHLORIDE
     Route: 048
  3. FLUOXETINE [Suspect]
     Active Substance: FLUOXETINE\FLUOXETINE HYDROCHLORIDE
     Route: 048
  4. DEXTROMETHORPHAN [Suspect]
     Active Substance: DEXTROMETHORPHAN
     Route: 048

REACTIONS (2)
  - Drug administration error [Fatal]
  - Toxicity to various agents [Fatal]
